FAERS Safety Report 26139695 (Version 1)
Quarter: 2025Q4

REPORT INFORMATION
  Report Type: Spontaneous
  Country: CN (occurrence: CN)
  Receive Date: 20251210
  Receipt Date: 20251210
  Transmission Date: 20260117
  Serious: Yes (Other)
  Sender: CHEPLAPHARM
  Company Number: CN-CHEPLA-2025013710

PATIENT
  Age: 56 Year
  Sex: Male

DRUGS (4)
  1. CAPECITABINE [Suspect]
     Active Substance: CAPECITABINE
     Indication: Colon cancer
     Dosage: (APPROVAL NO. GYZZ H20073024), BID?DAILY DOSE: 3 GRAM
     Route: 048
     Dates: start: 20251106, end: 20251110
  2. OXALIPLATIN [Suspect]
     Active Substance: OXALIPLATIN
     Indication: Colon cancer
     Dosage: (APPROVAL NO. GYZZ H20203216), INJECTED BY A MICRO PUMP?DAILY DOSE: 220 MILLIGRAM
     Dates: start: 20251106, end: 20251106
  3. HERBALS [Suspect]
     Active Substance: HERBALS
     Indication: Targeted cancer therapy
     Dosage: (APPROVAL NO. GYZZ Z21020639)?DAILY DOSE: 30 MILLILITRE
     Route: 042
     Dates: start: 20251106, end: 20251106
  4. DEXTROSE [Concomitant]
     Active Substance: DEXTROSE MONOHYDRATE
     Indication: Medication dilution
     Dates: start: 20251106

REACTIONS (3)
  - Neuropathy peripheral [Recovering/Resolving]
  - Convulsions local [Recovering/Resolving]
  - Hypoaesthesia oral [Recovering/Resolving]

NARRATIVE: CASE EVENT DATE: 20251110
